FAERS Safety Report 5708597-6 (Version None)
Quarter: 2008Q2

REPORT INFORMATION
  Report Type: 
  Country: None (occurrence: None)
  Receive Date: 20080417
  Receipt Date: 20080411
  Transmission Date: 20081010
  Serious: Yes (Hospitalization)
  Sender: FDA-Public Use
  Company Number: FR-ELI_LILLY_AND_COMPANY-FR200804003007

PATIENT
  Sex: Male

DRUGS (6)
  1. ZYPREXA [Suspect]
     Indication: AFFECTIVE DISORDER
     Dosage: 30 MG, EACH MORNING
     Route: 048
     Dates: start: 20080108
  2. ZYPREXA [Suspect]
     Dosage: 10 MG, EACH EVENING
     Route: 048
     Dates: start: 20080108
  3. TEGRETOL [Concomitant]
     Indication: AFFECTIVE DISORDER
     Dosage: 1200 MG, DAILY (1/D)
     Route: 048
  4. TEGRETOL [Concomitant]
     Dosage: 800 MG, DAILY (1/D)
     Route: 048
  5. FLUANXOL [Concomitant]
     Indication: ABNORMAL BEHAVIOUR
     Dosage: 4 D/F, EVERY 3 WEEKS
  6. ATARAX /00058401/ [Concomitant]
     Indication: ANXIETY
     Dosage: 300 MG, DAILY (1/D)
     Route: 048
     Dates: start: 20080108

REACTIONS (4)
  - DRUG INEFFECTIVE [None]
  - DRUG LEVEL DECREASED [None]
  - OVERDOSE [None]
  - THROMBOCYTOPENIA [None]
